FAERS Safety Report 25337407 (Version 1)
Quarter: 2025Q2

REPORT INFORMATION
  Report Type: Spontaneous
  Country: US (occurrence: US)
  Receive Date: 20250520
  Receipt Date: 20250520
  Transmission Date: 20250717
  Serious: No
  Sender: BridgeBio Pharma
  Company Number: US-BRIDGEBIO-25US000446

PATIENT

DRUGS (1)
  1. ATTRUBY [Suspect]
     Active Substance: ACORAMIDIS HYDROCHLORIDE
     Indication: Acquired ATTR amyloidosis
     Dates: start: 20250317

REACTIONS (1)
  - Fatigue [Unknown]
